FAERS Safety Report 18407188 (Version 1)
Quarter: 2020Q4

REPORT INFORMATION
  Report Type: Spontaneous
  Country: AU (occurrence: AU)
  Receive Date: 20201020
  Receipt Date: 20201020
  Transmission Date: 20210114
  Serious: No
  Sender: FDA-Public Use
  Company Number: AU-LUPIN PHARMACEUTICALS INC.-2020-07206

PATIENT
  Age: 61 Year
  Sex: Female

DRUGS (5)
  1. METHOTREXATE. [Suspect]
     Active Substance: METHOTREXATE
     Indication: SKIN LESION
     Dosage: 10 MILLIGRAM, WEEKLY
     Route: 065
  2. CICLOSPORIN [Concomitant]
     Active Substance: CYCLOSPORINE
     Dosage: 10 MILLIGRAM, QD (RESTARTED)
     Route: 065
  3. HYDROXYCHLOROQUINE [Suspect]
     Active Substance: HYDROXYCHLOROQUINE
     Indication: SKIN LESION
     Dosage: 200 MILLIGRAM, QD
     Route: 065
  4. TRIAMCINOLONE [Suspect]
     Active Substance: TRIAMCINOLONE
     Indication: SKIN LESION
     Dosage: 10 MILLIGRAM PER MILLILITRE, UNK
     Route: 026
  5. CICLOSPORIN [Concomitant]
     Active Substance: CYCLOSPORINE
     Indication: SKIN LESION
     Dosage: 50 MILLIGRAM, BID (STOPPED)
     Route: 065

REACTIONS (3)
  - Drug resistance [Unknown]
  - Drug ineffective [Unknown]
  - Therapy non-responder [Unknown]
